FAERS Safety Report 8522771-5 (Version None)
Quarter: 2012Q3

REPORT INFORMATION
  Report Type: 
  Country: None (occurrence: None)
  Receive Date: 20120719
  Receipt Date: 20120718
  Transmission Date: 20120928
  Serious: Yes (Other)
  Sender: FDA-Public Use
  Company Number: US-BAYER-2012-072126

PATIENT
  Sex: Female

DRUGS (1)
  1. BETASERON [Suspect]

REACTIONS (1)
  - ABORTION SPONTANEOUS [None]
